FAERS Safety Report 5597982-1 (Version None)
Quarter: 2008Q1

REPORT INFORMATION
  Report Type: 
  Country: None (occurrence: None)
  Receive Date: 20080116
  Receipt Date: 20080104
  Transmission Date: 20080703
  Serious: Yes (Hospitalization)
  Sender: FDA-Public Use
  Company Number: 2008AL000163

PATIENT
  Age: 71 Year
  Sex: Female

DRUGS (3)
  1. DICLOFENAC SODIUM [Suspect]
     Indication: PREOPERATIVE CARE
     Dosage: 100 MG;X1;PO
     Route: 048
     Dates: start: 20071221, end: 20071221
  2. INFANTS' APAP DROPS (ACETAMINOPHEN) (ALPHARMA) (INFANTS' APAP DROPS (A [Suspect]
     Indication: PREOPERATIVE CARE
     Dosage: 1 G;X1;PO
     Route: 048
     Dates: start: 20071221, end: 20071221
  3. EMLA [Concomitant]

REACTIONS (5)
  - ANAPHYLACTIC REACTION [None]
  - CARDIOVASCULAR DISORDER [None]
  - CIRCULATORY COLLAPSE [None]
  - RASH ERYTHEMATOUS [None]
  - VOMITING [None]
